FAERS Safety Report 4315310-6 (Version None)
Quarter: 2004Q1

REPORT INFORMATION
  Report Type: 
  Country: None (occurrence: None)
  Receive Date: 20040309
  Receipt Date: 20040219
  Transmission Date: 20041129
  Serious: Yes (Other)
  Sender: FDA-Public Use
  Company Number: USA040259826

PATIENT
  Sex: Female

DRUGS (2)
  1. HUMULIN-HUMAN NPH INSULIN [Suspect]
     Dosage: 35 U/IN THE MORNING
  2. PREDNISONE [Concomitant]

REACTIONS (7)
  - BLOOD CHOLESTEROL INCREASED [None]
  - CONFUSIONAL STATE [None]
  - DIPLOPIA [None]
  - HYPERGLYCAEMIA [None]
  - PHARMACEUTICAL PRODUCT COMPLAINT [None]
  - PLATELET COUNT DECREASED [None]
  - VISION BLURRED [None]
